FAERS Safety Report 9278615 (Version 1)
Quarter: 2013Q2

REPORT INFORMATION
  Report Type: Spontaneous
  Country: US (occurrence: US)
  Receive Date: 20130508
  Receipt Date: 20130508
  Transmission Date: 20140414
  Serious: No
  Sender: FDA-Public Use
  Company Number: US-PFIZER INC-2013138383

PATIENT
  Age: 59 Year
  Sex: Female

DRUGS (2)
  1. AMLODIPINE BESILATE [Suspect]
     Dosage: UNK
     Dates: start: 20130413
  2. LISINOPRIL [Suspect]
     Dosage: UNK
     Dates: start: 20130413

REACTIONS (4)
  - Fatigue [Unknown]
  - Pain in extremity [Unknown]
  - Groin pain [Unknown]
  - Feeling abnormal [Unknown]
